FAERS Safety Report 13395319 (Version 2)
Quarter: 2017Q2

REPORT INFORMATION
  Report Type: Spontaneous
  Country: US (occurrence: US)
  Receive Date: 20170403
  Receipt Date: 20170426
  Transmission Date: 20170830
  Serious: No
  Sender: FDA-Public Use
  Company Number: US-PFIZER INC-2017140658

PATIENT
  Sex: Male

DRUGS (1)
  1. XELJANZ XR [Suspect]
     Active Substance: TOFACITINIB CITRATE
     Dosage: 11 MG, DAILY (ON IT FOR 6 WEEKS)

REACTIONS (16)
  - Fatigue [Unknown]
  - Pain in extremity [Unknown]
  - Temperature intolerance [Unknown]
  - Joint effusion [Unknown]
  - Night sweats [Unknown]
  - Abnormal loss of weight [Unknown]
  - Decreased appetite [Unknown]
  - Asthenia [Unknown]
  - Constipation [Unknown]
  - Myalgia [Unknown]
  - Alopecia [Unknown]
  - Stress [Unknown]
  - Rash [Unknown]
  - Drug effect incomplete [Not Recovered/Not Resolved]
  - Sleep disorder [Unknown]
  - Joint crepitation [Unknown]
